FAERS Safety Report 25519590 (Version 3)
Quarter: 2025Q3

REPORT INFORMATION
  Report Type: Spontaneous
  Country: GB (occurrence: GB)
  Receive Date: 20250704
  Receipt Date: 20250903
  Transmission Date: 20251020
  Serious: Yes (Hospitalization, Congenital Anomaly)
  Sender: ROCHE
  Company Number: None

PATIENT
  Age: 0 Day
  Sex: Male
  Weight: 2.456 kg

DRUGS (10)
  1. EVRYSDI [Suspect]
     Active Substance: RISDIPLAM
     Indication: Product used for unknown indication
     Route: 064
  2. ALBUTEROL [Concomitant]
     Active Substance: ALBUTEROL
  3. BECLOMETHASONE DIPROPIONATE [Concomitant]
     Active Substance: BECLOMETHASONE DIPROPIONATE
  4. HAYFEVER [Concomitant]
  5. IBUPROFEN [Concomitant]
     Active Substance: IBUPROFEN
  6. ACETAMINOPHEN [Concomitant]
     Active Substance: ACETAMINOPHEN
  7. COCODAMOL [Concomitant]
     Active Substance: ACETAMINOPHEN\CODEINE PHOSPHATE
  8. LABETALOL [Concomitant]
     Active Substance: LABETALOL
  9. ASPIRIN [Concomitant]
     Active Substance: ASPIRIN
  10. UNSPECIFIED INGREDIENT [Concomitant]
     Active Substance: UNSPECIFIED INGREDIENT

REACTIONS (8)
  - Foetal exposure during pregnancy [Unknown]
  - Neonatal respiratory distress [Recovering/Resolving]
  - Hypoglycaemia neonatal [Recovered/Resolved]
  - Jaundice neonatal [Unknown]
  - Adactyly [Unknown]
  - Phalangeal hypoplasia [Unknown]
  - Single umbilical artery [Unknown]
  - Congenital hand malformation [Unknown]

NARRATIVE: CASE EVENT DATE: 20250430
